FAERS Safety Report 9551330 (Version 1)
Quarter: 2013Q3

REPORT INFORMATION
  Report Type: Spontaneous
  Country: US (occurrence: None)
  Receive Date: 20130724
  Receipt Date: 20130724
  Transmission Date: 20140515
  Serious: Yes (Hospitalization, Other)
  Sender: FDA-Public Use
  Company Number: PHEH2012US017487

PATIENT
  Age: 77 Year
  Sex: Female

DRUGS (1)
  1. GLEEVEC (IMATINIB) UNKNOWN [Suspect]
     Indication: CHRONIC MYELOID LEUKAEMIA
     Dosage: 400 MG 2 ALT WITH 1 QD, ORAL
     Route: 048
     Dates: start: 200910

REACTIONS (1)
  - Pleural effusion [None]
